FAERS Safety Report 25557472 (Version 5)
Quarter: 2025Q4

REPORT INFORMATION
  Report Type: Report from Study
  Country: EU (occurrence: None)
  Receive Date: 20250715
  Receipt Date: 20251201
  Transmission Date: 20260118
  Serious: Yes (Other)
  Sender: UCB
  Company Number: EU-UCBSA-2025012482

PATIENT
  Age: 54 Year
  Weight: 105 kg

DRUGS (6)
  1. BIMEKIZUMAB [Suspect]
     Active Substance: BIMEKIZUMAB
     Indication: Psoriatic arthropathy
     Dosage: 160 MILLIGRAM, MONTHLY (QM)
  2. Bispoprolol [Concomitant]
     Indication: Hypertension
     Dosage: 10 MILLIGRAM, ONCE DAILY (QD)
  3. SPIRONOLACTONE [Concomitant]
     Active Substance: SPIRONOLACTONE
     Indication: Hypertension
     Dosage: 25 MILLIGRAM
  4. LEVOCETIRIZINE [Concomitant]
     Active Substance: LEVOCETIRIZINE
     Indication: Hypersensitivity
     Dosage: UNK, 1 TABLET 1 PER DAY
  5. ESOMEPRAZOLE [Concomitant]
     Active Substance: ESOMEPRAZOLE
     Indication: Prophylaxis
     Dosage: 40 MILLIGRAM, ONCE DAILY (QD)
  6. LATANOPROST [Concomitant]
     Active Substance: LATANOPROST
     Indication: Glaucoma
     Dosage: 50 MCG ONCE PER DAY

REACTIONS (3)
  - Pyelonephritis [Recovered/Resolved]
  - Oral candidiasis [Recovered/Resolved]
  - Urinary tract infection [Recovered/Resolved]
